FAERS Safety Report 8850893 (Version 2)
Quarter: 2012Q4

REPORT INFORMATION
  Report Type: 
  Country: US (occurrence: US)
  Receive Date: 20121019
  Receipt Date: 20121127
  Transmission Date: 20130627
  Serious: No
  Sender: FDA-Public Use
  Company Number: US-BAYER-2012-106826

PATIENT
  Age: 34 Year
  Sex: Female

DRUGS (1)
  1. MIRENA [Suspect]
     Dosage: 20 mcg/24hr, CONT
     Route: 015
     Dates: start: 201110

REACTIONS (6)
  - Pregnancy with contraceptive device [None]
  - Breast tenderness [None]
  - Nausea [None]
  - Fatigue [None]
  - Feeling abnormal [None]
  - Drug ineffective [None]
